FAERS Safety Report 12584416 (Version 1)
Quarter: 2016Q3

REPORT INFORMATION
  Report Type: Spontaneous
  Country: JP (occurrence: JP)
  Receive Date: 20160722
  Receipt Date: 20160722
  Transmission Date: 20161109
  Serious: No
  Sender: FDA-Public Use
  Company Number: JP-SA-2013SA109630

PATIENT
  Sex: Male

DRUGS (1)
  1. IMMUCYST [Suspect]
     Active Substance: BACILLUS CALMETTE-GUERIN SUBSTRAIN CONNAUGHT LIVE ANTIGEN
     Indication: IMMUNISATION
     Route: 065

REACTIONS (4)
  - Pyrexia [Unknown]
  - Dysuria [Unknown]
  - Haematuria [Unknown]
  - Pollakiuria [Unknown]
